FAERS Safety Report 7474733-7 (Version None)
Quarter: 2011Q1

REPORT INFORMATION
  Report Type: 
  Country: None (occurrence: None)
  Receive Date: 20110302
  Receipt Date: 20100914
  Transmission Date: 20110831
  Serious: Yes (Death, Other)
  Sender: FDA-Public Use
  Company Number: 163-21880-10042161

PATIENT
  Age: 68 Year
  Sex: Female

DRUGS (9)
  1. REVLIMID [Suspect]
     Indication: DIFFUSE LARGE B-CELL LYMPHOMA
     Dosage: 5 MG, 1 IN 1 D, PO
     Route: 048
     Dates: start: 20100225, end: 20100412
  2. ALLOPURINOL [Concomitant]
  3. ASPIRIN [Concomitant]
  4. FLUCONAZOLE [Concomitant]
  5. ACYCLOVIR [Concomitant]
  6. RITUXIMAB (RITUXIMAB) [Concomitant]
  7. SOLU-MEDROL [Concomitant]
  8. PROTONIX [Concomitant]
  9. FENTANYL [Concomitant]

REACTIONS (3)
  - WHITE BLOOD CELL COUNT DECREASED [None]
  - PNEUMONIA [None]
  - NEUTROPHIL COUNT DECREASED [None]
